FAERS Safety Report 10990052 (Version 4)
Quarter: 2015Q4

REPORT INFORMATION
  Report Type: Report from Study
  Country: JP (occurrence: JP)
  Receive Date: 20150406
  Receipt Date: 20151007
  Transmission Date: 20160304
  Serious: Yes (Other)
  Sender: FDA-Public Use
  Company Number: JP-JNJFOC-20150217591

PATIENT
  Age: 62 Year
  Sex: Male
  Weight: 69 kg

DRUGS (5)
  1. EPADEL S [Concomitant]
     Active Substance: ICOSAPENT ETHYL
     Indication: PROPHYLAXIS
     Dosage: 2 DF
     Route: 048
     Dates: start: 20141106, end: 20150422
  2. PEGASYS [Suspect]
     Active Substance: PEGINTERFERON ALFA-2A
     Indication: CHRONIC HEPATITIS C
     Route: 058
     Dates: start: 20141106, end: 20150416
  3. SOVRIAD [Suspect]
     Active Substance: SIMEPREVIR
     Indication: CHRONIC HEPATITIS C
     Route: 048
     Dates: start: 20141106, end: 20150128
  4. RIBAVIRIN. [Suspect]
     Active Substance: RIBAVIRIN
     Indication: CHRONIC HEPATITIS C
     Dosage: DOSAGE FORM: PERORAL MEDICINE
     Route: 048
     Dates: start: 20150305, end: 20150422
  5. RIBAVIRIN. [Suspect]
     Active Substance: RIBAVIRIN
     Indication: CHRONIC HEPATITIS C
     Dosage: DOSAGE FORM: PERORAL MEDICINE
     Route: 048
     Dates: start: 20141106, end: 20150304

REACTIONS (3)
  - Haemoglobin decreased [Recovered/Resolved]
  - Platelet count decreased [Recovered/Resolved]
  - Insomnia [Recovering/Resolving]

NARRATIVE: CASE EVENT DATE: 20141113
